FAERS Safety Report 4910800-7 (Version None)
Quarter: 2006Q1

REPORT INFORMATION
  Report Type: 
  Country: None (occurrence: None)
  Receive Date: 20060210
  Receipt Date: 20060210
  Transmission Date: 20060701
  Serious: Yes (Hospitalization, Other)
  Sender: FDA-Public Use
  Company Number: None

PATIENT
  Sex: Female
  Weight: 102 kg

DRUGS (3)
  1. CYTARABINE [Suspect]
     Indication: ACUTE MYELOID LEUKAEMIA
     Dosage: 1617 MG
     Dates: start: 20050819
  2. DAUNORUBICIN [Suspect]
     Dosage: 624 MG
     Dates: start: 20050814
  3. ETOPOSIDE [Suspect]
     Dosage: 693 MG
     Dates: start: 20050814

REACTIONS (7)
  - DEPRESSED LEVEL OF CONSCIOUSNESS [None]
  - LUNG NEOPLASM [None]
  - PYREXIA [None]
  - SEPSIS [None]
  - SOMNOLENCE [None]
  - STAPHYLOCOCCAL BACTERAEMIA [None]
  - STENOTROPHOMONAS INFECTION [None]
